FAERS Safety Report 13540019 (Version 4)
Quarter: 2017Q2

REPORT INFORMATION
  Report Type: Spontaneous
  Country: JP (occurrence: JP)
  Receive Date: 20170512
  Receipt Date: 20170614
  Transmission Date: 20170830
  Serious: Yes (Death, Hospitalization, Other)
  Sender: FDA-Public Use
  Company Number: JP-GLAXOSMITHKLINE-JP2017JPN064006

PATIENT
  Age: 68 Year
  Sex: Male
  Weight: 75 kg

DRUGS (15)
  1. VALTREX [Suspect]
     Active Substance: VALACYCLOVIR HYDROCHLORIDE
     Indication: FACIAL PARALYSIS
     Dosage: 3000 MG, 1D
     Route: 048
     Dates: start: 20170412, end: 20170416
  2. REGPARA [Concomitant]
     Active Substance: CINACALCET HYDROCHLORIDE
     Dosage: UNK
  3. RABEPRAZOLE SODIUM. [Concomitant]
     Active Substance: RABEPRAZOLE SODIUM
     Dosage: UNK
  4. MAINTATE [Concomitant]
     Active Substance: BISOPROLOL FUMARATE
     Dosage: UNK
  5. CLOPIDOGREL [Suspect]
     Active Substance: CLOPIDOGREL BISULFATE
     Dosage: 75 MG, 1D
     Route: 048
  6. DIART [Concomitant]
     Active Substance: AZOSEMIDE
     Dosage: UNK
  7. SENNOSIDE [Concomitant]
     Active Substance: SENNOSIDES
     Dosage: UNK
  8. PLAVIX [Concomitant]
     Active Substance: CLOPIDOGREL BISULFATE
     Dosage: UNK
  9. PITAVASTATIN CALCIUM [Concomitant]
     Active Substance: PITAVASTATIN CALCIUM
     Dosage: UNK
  10. CALCIUM CARBONATE. [Concomitant]
     Active Substance: CALCIUM CARBONATE
     Dosage: UNK
  11. KIKLIN [Concomitant]
     Active Substance: BIXALOMER
     Dosage: UNK
  12. CARNACULIN [Concomitant]
     Active Substance: KALLIDINOGENASE
     Dosage: UNK
  13. FEBURIC [Concomitant]
     Active Substance: FEBUXOSTAT
     Dosage: UNK
  14. SPIRONOLACTONE. [Concomitant]
     Active Substance: SPIRONOLACTONE
     Dosage: UNK
  15. METHYCOBAL [Concomitant]
     Active Substance: METHYLCOBALAMIN
     Dosage: UNK

REACTIONS (10)
  - Dysarthria [Unknown]
  - Pleural effusion [Unknown]
  - Altered state of consciousness [Recovered/Resolved]
  - Respiratory arrest [Unknown]
  - Product use in unapproved indication [Unknown]
  - Dyspnoea [Unknown]
  - Prescribed overdose [Unknown]
  - Gastrointestinal haemorrhage [Fatal]
  - Cardiac failure congestive [Unknown]
  - Cardiac arrest [Unknown]

NARRATIVE: CASE EVENT DATE: 20170412
